FAERS Safety Report 12430614 (Version 1)
Quarter: 2016Q2

REPORT INFORMATION
  Report Type: Spontaneous
  Country: US (occurrence: US)
  Receive Date: 20160602
  Receipt Date: 20160602
  Transmission Date: 20160815
  Serious: No
  Sender: FDA-Public Use
  Company Number: US-ELI_LILLY_AND_COMPANY-US201605008614

PATIENT
  Sex: Male

DRUGS (4)
  1. METFORMIN [Concomitant]
     Active Substance: METFORMIN HYDROCHLORIDE
  2. HUMALOG [Suspect]
     Active Substance: INSULIN LISPRO
     Indication: PRODUCT USED FOR UNKNOWN INDICATION
     Dosage: UNK, TID WITH MEALS
     Route: 065
     Dates: start: 2014
  3. HUMALOG [Suspect]
     Active Substance: INSULIN LISPRO
     Dosage: UNK, TID WITH MEALS
     Route: 065
  4. TOUJEO [Concomitant]
     Active Substance: INSULIN GLARGINE

REACTIONS (2)
  - Skin reaction [Recovered/Resolved]
  - Injury associated with device [Recovered/Resolved]
